FAERS Safety Report 5740988-X (Version None)
Quarter: 2008Q2

REPORT INFORMATION
  Report Type: 
  Country: None (occurrence: None)
  Receive Date: 20080516
  Receipt Date: 20080508
  Transmission Date: 20081010
  Serious: Yes (Hospitalization, Other)
  Sender: FDA-Public Use
  Company Number: PH-PFIZER INC-2008033306

PATIENT
  Age: 70 Year

DRUGS (3)
  1. SULPERAZONE [Suspect]
     Indication: PROPHYLAXIS
  2. ANALGESICS [Concomitant]
  3. TRAMADOL HCL [Concomitant]

REACTIONS (2)
  - JAUNDICE [None]
  - PYREXIA [None]
